FAERS Safety Report 11052397 (Version 4)
Quarter: 2015Q2

REPORT INFORMATION
  Report Type: Report from Study
  Country: JP (occurrence: JP)
  Receive Date: 20150421
  Receipt Date: 20150612
  Transmission Date: 20150821
  Serious: Yes (Hospitalization, Other)
  Sender: FDA-Public Use
  Company Number: JP-AMGEN-JPNCT2015031901

PATIENT
  Age: 76 Year
  Sex: Female
  Weight: 47 kg

DRUGS (12)
  1. ETHYL ICOSAPENTATE [Concomitant]
     Active Substance: ETHYL ICOSAPENTATE
     Dosage: 900 MG, UNK
     Route: 048
     Dates: start: 20140123
  2. DENOSUMAB [Suspect]
     Active Substance: DENOSUMAB
     Indication: OSTEOPOROSIS POSTMENOPAUSAL
     Dosage: 1 ML, UNK
     Route: 058
     Dates: start: 20131114
  3. LOXONIN [Concomitant]
     Active Substance: LOXOPROFEN SODIUM
     Dosage: 50 MG, UNK
     Route: 061
     Dates: start: 20130307
  4. DOMPERIDONE [Concomitant]
     Active Substance: DOMPERIDONE
     Dosage: 10 MG, UNK
     Route: 048
     Dates: start: 20140613, end: 20150314
  5. VITAMIN D                          /00107901/ [Concomitant]
     Active Substance: ERGOCALCIFEROL
     Dosage: 200 IU, UNK
     Route: 048
     Dates: start: 20121004
  6. MAGNESIUM OXIDE. [Concomitant]
     Active Substance: MAGNESIUM OXIDE
     Dosage: 1 G, UNK
     Route: 048
     Dates: start: 20140613, end: 20150314
  7. CALCIUM [Concomitant]
     Active Substance: CALCIUM
     Dosage: 600 MG, UNK
     Route: 048
     Dates: start: 20121004, end: 20141112
  8. ETIZOLAM [Concomitant]
     Active Substance: ETIZOLAM
     Dosage: 0.5 MG, UNK
     Route: 048
     Dates: start: 20131021, end: 20150314
  9. REBAMIPIDE [Concomitant]
     Active Substance: REBAMIPIDE
     Dosage: 100 MG, UNK
     Route: 048
     Dates: start: 20140613
  10. VOLTAREN [Concomitant]
     Active Substance: DICLOFENAC SODIUM
     Dosage: 1 UNK, UNK
     Route: 061
     Dates: start: 20131003
  11. AMG 785 [Suspect]
     Active Substance: ROMOSOZUMAB
     Indication: OSTEOPOROSIS POSTMENOPAUSAL
     Dosage: 210 MG, UNK
     Route: 058
     Dates: start: 20121108, end: 20131003
  12. EXCELASE [Concomitant]
     Active Substance: PANCRELIPASE
     Dosage: 1 UNK, UNK
     Route: 048
     Dates: start: 20140613, end: 20150314

REACTIONS (1)
  - Large intestine polyp [Recovered/Resolved]

NARRATIVE: CASE EVENT DATE: 20140913
